FAERS Safety Report 6362419-1 (Version None)
Quarter: 2009Q3

REPORT INFORMATION
  Report Type: 
  Country: None (occurrence: None)
  Receive Date: 20090918
  Receipt Date: 20090611
  Transmission Date: 20100115
  Serious: No
  Sender: FDA-Public Use
  Company Number: US-ABBOTT-09P-163-0575534-00

PATIENT
  Sex: Female

DRUGS (1)
  1. HUMIRA [Suspect]
     Indication: COLITIS ULCERATIVE
     Route: 058
     Dates: start: 20081120

REACTIONS (5)
  - BREAST DISCHARGE [None]
  - BREAST MASS [None]
  - INTRADUCTAL PAPILLOMA OF BREAST [None]
  - NIPPLE DISORDER [None]
  - PRURITUS [None]
